FAERS Safety Report 4601187-8 (Version None)
Quarter: 2005Q1

REPORT INFORMATION
  Report Type: 
  Country: None (occurrence: None)
  Receive Date: 20050204
  Receipt Date: 20040622
  Transmission Date: 20050727
  Serious: Yes (Other)
  Sender: FDA-Public Use
  Company Number: US-2004-027416

PATIENT
  Age: 33 Year
  Sex: Female

DRUGS (1)
  1. MIRENA [Suspect]
     Indication: CONTRACEPTION
     Dosage: 20 MICROG, CONT, INTA-UTERINE
     Route: 015
     Dates: start: 20031114, end: 20040610

REACTIONS (2)
  - ECTOPIC PREGNANCY [None]
  - PREGNANCY WITH CONTRACEPTIVE DEVICE [None]
